FAERS Safety Report 21230753 (Version 1)
Quarter: 2022Q3

REPORT INFORMATION
  Report Type: Spontaneous
  Country: CN (occurrence: CN)
  Receive Date: 20220819
  Receipt Date: 20220819
  Transmission Date: 20221026
  Serious: Yes (Hospitalization)
  Sender: FDA-Public Use
  Company Number: CN-JNJFOC-20220831040

PATIENT
  Age: 64 Year
  Sex: Female
  Weight: 55 kg

DRUGS (1)
  1. CHILDRENS MOTRIN [Suspect]
     Active Substance: IBUPROFEN
     Indication: Asthma
     Route: 048
     Dates: start: 20220809, end: 20220809

REACTIONS (7)
  - Cyanosis [Recovering/Resolving]
  - Dyspnoea [Recovering/Resolving]
  - Blood pressure decreased [Recovering/Resolving]
  - Asthma [Recovering/Resolving]
  - Nausea [Recovering/Resolving]
  - Vomiting [Recovering/Resolving]
  - Rash [Recovering/Resolving]
